FAERS Safety Report 9317635 (Version 1)
Quarter: 2013Q2

REPORT INFORMATION
  Report Type: Spontaneous
  Country: US (occurrence: US)
  Receive Date: 20130530
  Receipt Date: 20130530
  Transmission Date: 20140414
  Serious: No
  Sender: FDA-Public Use
  Company Number: US-NOVEN-12US004971

PATIENT
  Sex: Female

DRUGS (1)
  1. DAYTRANA [Suspect]
     Indication: PRODUCT USED FOR UNKNOWN INDICATION
     Dosage: ONE 15MG PATCH CUT IN HALF
     Route: 062
     Dates: start: 20120715

REACTIONS (5)
  - Headache [Not Recovered/Not Resolved]
  - Initial insomnia [Not Recovered/Not Resolved]
  - Wrong technique in drug usage process [Not Recovered/Not Resolved]
  - Drug administration error [Not Recovered/Not Resolved]
  - Product quality issue [Not Recovered/Not Resolved]
